FAERS Safety Report 24709368 (Version 1)
Quarter: 2024Q4

REPORT INFORMATION
  Report Type: Report from Study
  Country: US (occurrence: US)
  Receive Date: 20241208
  Receipt Date: 20241208
  Transmission Date: 20250114
  Serious: Yes (Other)
  Sender: ABBVIE
  Company Number: US-ABBVIE-6029830

PATIENT
  Age: 75 Year
  Sex: Male

DRUGS (2)
  1. UBRELVY [Suspect]
     Active Substance: UBROGEPANT
     Indication: Migraine
     Route: 048
     Dates: start: 2022, end: 2022
  2. ASPIRIN [Suspect]
     Active Substance: ASPIRIN
     Indication: Headache
     Route: 065
     Dates: end: 202406

REACTIONS (12)
  - Perforated ulcer [Unknown]
  - Migraine [Not Recovered/Not Resolved]
  - Haemorrhage [Unknown]
  - Therapeutic product effect decreased [Unknown]
  - Cardiac disorder [Unknown]
  - Pallor [Unknown]
  - Constipation [Unknown]
  - Chronic obstructive pulmonary disease [Recovered/Resolved]
  - Feeling cold [Recovered/Resolved]
  - Sleep apnoea syndrome [Unknown]
  - Ulcer haemorrhage [Unknown]
  - Drug dependence [Unknown]

NARRATIVE: CASE EVENT DATE: 20230101
